FAERS Safety Report 4486826-7 (Version None)
Quarter: 2004Q4

REPORT INFORMATION
  Report Type: 
  Country: None (occurrence: None)
  Receive Date: 20041022
  Receipt Date: 20041006
  Transmission Date: 20050328
  Serious: Yes (Death)
  Sender: FDA-Public Use
  Company Number: 2004BL007056

PATIENT
  Age: 44 Year

DRUGS (4)
  1. ALBUTEROL SULFATE [Suspect]
  2. FENTANYL [Suspect]
     Dosage: ORAL
     Route: 048
  3. CLONAZEPAM [Suspect]
     Dosage: ORAL
     Route: 048
  4. RISPERIDONE [Suspect]
     Dosage: ORAL
     Route: 048

REACTIONS (2)
  - DRUG ABUSER [None]
  - INTENTIONAL MISUSE [None]
